FAERS Safety Report 20933366 (Version 1)
Quarter: 2022Q2

REPORT INFORMATION
  Report Type: Spontaneous
  Country: FR (occurrence: FR)
  Receive Date: 20220608
  Receipt Date: 20220608
  Transmission Date: 20220720
  Serious: Yes (Death)
  Sender: FDA-Public Use
  Company Number: None

PATIENT
  Age: 52 Year
  Sex: Male

DRUGS (2)
  1. TRAMADOL HYDROCHLORIDE [Suspect]
     Active Substance: TRAMADOL HYDROCHLORIDE
     Dosage: UNKNOWN ,TRAMADOL (CHLORHYDRATE DE)
     Route: 065
     Dates: end: 202108
  2. PREGABALIN [Suspect]
     Active Substance: PREGABALIN
     Dosage: UNKNOWN
     Route: 065
     Dates: end: 202108

REACTIONS (1)
  - Poisoning deliberate [Fatal]
